FAERS Safety Report 5525809-2 (Version None)
Quarter: 2007Q4

REPORT INFORMATION
  Report Type: 
  Country: None (occurrence: None)
  Receive Date: 20071126
  Receipt Date: 20071115
  Transmission Date: 20080405
  Serious: Yes (Death, Hospitalization)
  Sender: FDA-Public Use
  Company Number: DE-PFIZER INC-2007073192

PATIENT
  Age: 5 Year
  Sex: Female

DRUGS (3)
  1. VFEND [Suspect]
  2. COTRIM [Concomitant]
  3. CYCLOSPORINE [Concomitant]

REACTIONS (2)
  - HEPATIC FAILURE [None]
  - POISONING [None]
